FAERS Safety Report 18335838 (Version 5)
Quarter: 2021Q2

REPORT INFORMATION
  Report Type: Report from Study
  Country: BR (occurrence: BR)
  Receive Date: 20201001
  Receipt Date: 20210605
  Transmission Date: 20210717
  Serious: Yes (Other)
  Sender: FDA-Public Use
  Company Number: BR-UCBSA-2020038215

PATIENT
  Age: 57 Year
  Sex: Female
  Weight: 75 kg

DRUGS (11)
  1. INFRALAX [Concomitant]
     Active Substance: ACETAMINOPHEN\CAFFEINE\CARISOPRODOL\DICLOFENAC SODIUM
     Indication: PAIN
     Dosage: UNK
  2. EXODUS [ESCITALOPRAM OXALATE] [Concomitant]
     Indication: CLAUSTROPHOBIA
     Dosage: 10 MILLIGRAM
     Route: 048
     Dates: start: 2010
  3. EXODUS [ESCITALOPRAM OXALATE] [Concomitant]
     Indication: ANXIETY
  4. CERTOLIZUMAB PEGOL [Suspect]
     Active Substance: CERTOLIZUMAB PEGOL
     Dosage: 400 MILLIGRAM, EV 30 DAYS
     Route: 058
     Dates: end: 20210312
  5. LEFLUNOMIDE. [Concomitant]
     Active Substance: LEFLUNOMIDE
     Indication: RHEUMATOID ARTHRITIS
     Dosage: 20 MILLIGRAM 1 TABLET DAILY
     Route: 048
     Dates: start: 2016
  6. CERTOLIZUMAB PEGOL [Suspect]
     Active Substance: CERTOLIZUMAB PEGOL
     Indication: RHEUMATOID ARTHRITIS
     Dosage: 400 MILLIGRAM, MONTHLY (QM)
     Route: 058
     Dates: start: 201708
  7. PREDNISONA [Concomitant]
     Active Substance: PREDNISONE
     Indication: PAIN
     Dosage: 1 DOSAGE FORM, ONCE DAILY (QD)
     Route: 048
  8. DEXANEURIN [Concomitant]
     Active Substance: DEXAMETHASONE\LIDOCAINE\VITAMINS
     Indication: PAIN
     Dosage: UNK
  9. EXODUS [ESCITALOPRAM OXALATE] [Concomitant]
     Indication: PANIC DISORDER
     Dosage: 5 MILLIGRAM, ONCE DAILY (QD)
     Route: 048
     Dates: start: 2010
  10. METOTREXATO [METHOTREXATE] [Concomitant]
     Active Substance: METHOTREXATE
     Indication: RHEUMATOID ARTHRITIS
     Dosage: UNK, 3X/DAY (TID) (ON MONDAY AND TUESDAY)
     Route: 048
     Dates: start: 201708
  11. LOSARTANA POTASSICA [Concomitant]
     Active Substance: LOSARTAN
     Indication: HYPERTENSION
     Dosage: 1 TABLET  ONCE DAILY (QD)
     Route: 048
     Dates: start: 2012

REACTIONS (8)
  - Product prescribing issue [Unknown]
  - Rheumatoid arthritis [Not Recovered/Not Resolved]
  - Therapy interrupted [Unknown]
  - Weight increased [Unknown]
  - Memory impairment [Unknown]
  - Nephrolithiasis [Not Recovered/Not Resolved]
  - Product availability issue [Unknown]
  - Intervertebral disc protrusion [Not Recovered/Not Resolved]

NARRATIVE: CASE EVENT DATE: 201912
